FAERS Safety Report 4405899-0 (Version None)
Quarter: 2004Q3

REPORT INFORMATION
  Report Type: 
  Country: None (occurrence: None)
  Receive Date: 20040723
  Receipt Date: 20040203
  Transmission Date: 20050211
  Serious: No
  Sender: FDA-Public Use
  Company Number: US-GLAXOSMITHKLINE-A0496346A

PATIENT
  Age: 65 Year
  Sex: Female
  Weight: 80 kg

DRUGS (12)
  1. AVANDIA [Suspect]
     Route: 048
  2. GLUCOTROL XL [Concomitant]
     Dosage: 10MG TWICE PER DAY
     Route: 065
  3. GLUCOPHAGE [Concomitant]
     Dosage: 1G TWICE PER DAY
     Route: 065
  4. LANTUS [Concomitant]
  5. ASPIRIN [Concomitant]
  6. PRAVACHOL [Concomitant]
     Dosage: 20MG PER DAY
     Route: 065
  7. METOPROLOL [Concomitant]
  8. HYZAAR [Concomitant]
  9. PREVACID [Concomitant]
  10. HYOSCYAMINE [Concomitant]
  11. ZETIA [Concomitant]
     Dosage: 10MG PER DAY
     Route: 065
  12. LOPID [Concomitant]
     Dosage: 600MG PER DAY
     Route: 065

REACTIONS (7)
  - DIZZINESS [None]
  - DYSPNOEA EXERTIONAL [None]
  - FATIGUE [None]
  - HEADACHE [None]
  - NOCTURIA [None]
  - OEDEMA PERIPHERAL [None]
  - VENOUS STASIS [None]
